FAERS Safety Report 13511676 (Version 1)
Quarter: 2017Q2

REPORT INFORMATION
  Report Type: Spontaneous
  Country: FR (occurrence: FR)
  Receive Date: 20170504
  Receipt Date: 20170504
  Transmission Date: 20170830
  Serious: Yes (Other)
  Sender: FDA-Public Use
  Company Number: FR-BAYER-2017-080755

PATIENT
  Age: 58 Year
  Sex: Male

DRUGS (5)
  1. ANTICOAGULANT SODIUM CITRATE [Concomitant]
     Active Substance: SODIUM CITRATE
     Dosage: UNK
  2. STIVARGA [Suspect]
     Active Substance: REGORAFENIB
     Dosage: DAILY DOSE 120 MG
     Dates: start: 201512
  3. DIGOXINE [Concomitant]
     Active Substance: DIGOXIN
  4. SOTALOL. [Concomitant]
     Active Substance: SOTALOL
  5. MONOTILDIEM [Concomitant]
     Active Substance: DILTIAZEM

REACTIONS (4)
  - Iron deficiency [None]
  - Microcytic anaemia [None]
  - Neutropenia [None]
  - Thrombocytopenia [None]
